FAERS Safety Report 7960425-4 (Version None)
Quarter: 2011Q4

REPORT INFORMATION
  Report Type: 
  Country: None (occurrence: None)
  Receive Date: 20111206
  Receipt Date: 20111128
  Transmission Date: 20120403
  Serious: Yes (Life-Threatening)
  Sender: FDA-Public Use
  Company Number: NL-CELGENEUS-114-21880-11100666

PATIENT
  Sex: Female
  Weight: 75 kg

DRUGS (1)
  1. REVLIMID [Suspect]
     Dosage: 10 MILLIGRAM
     Route: 048
     Dates: start: 20110906, end: 20110926

REACTIONS (2)
  - NECROTISING FASCIITIS [None]
  - FEBRILE NEUTROPENIA [None]
